FAERS Safety Report 18524527 (Version 1)
Quarter: 2020Q4

REPORT INFORMATION
  Report Type: Spontaneous
  Country: JP (occurrence: JP)
  Receive Date: 20201120
  Receipt Date: 20201120
  Transmission Date: 20210114
  Serious: Yes (Hospitalization)
  Sender: FDA-Public Use
  Company Number: JP-ALVOGEN-2020-ALVOGEN-115137

PATIENT
  Age: 39 Year
  Sex: Female
  Weight: 51.3 kg

DRUGS (7)
  1. NITROGLYCERIN. [Suspect]
     Active Substance: NITROGLYCERIN
     Indication: HYPOTENSIVE ANAESTHESIA PROCEDURE
     Dosage: 0.5 LG/KG/MIN
  2. FELYPRESSIN\PRILOCAINE [Suspect]
     Active Substance: FELYPRESSIN\PRILOCAINE
     Indication: LOCAL ANAESTHESIA
  3. ABILIFY [Concomitant]
     Active Substance: ARIPIPRAZOLE
     Indication: SCHIZOPHRENIA
  4. ROCURONIUM [Concomitant]
     Active Substance: ROCURONIUM BROMIDE
     Indication: GENERAL ANAESTHESIA
     Dosage: TOTAL DOSE 190 MG
  5. PROPOFOL. [Concomitant]
     Active Substance: PROPOFOL
     Indication: GENERAL ANAESTHESIA
  6. REMIFENTANIL [Concomitant]
     Active Substance: REMIFENTANIL
     Indication: GENERAL ANAESTHESIA
     Dosage: 0.15-0.4 LG/KG/MIN
  7. FENTANYL. [Concomitant]
     Active Substance: FENTANYL
     Indication: GENERAL ANAESTHESIA
     Dosage: TOTAL DOSE 600 LG

REACTIONS (1)
  - Methaemoglobinaemia [Recovering/Resolving]
